FAERS Safety Report 6534542-X (Version None)
Quarter: 2010Q1

REPORT INFORMATION
  Report Type: 
  Country: None (occurrence: None)
  Receive Date: 20100112
  Receipt Date: 20100105
  Transmission Date: 20100710
  Serious: Yes (Other)
  Sender: FDA-Public Use
  Company Number: US-JNJFOC-20090802421

PATIENT
  Sex: Male

DRUGS (7)
  1. RISPERDAL [Suspect]
     Indication: PANIC ATTACK
     Route: 065
  2. RISPERDAL [Suspect]
     Indication: ANXIETY
     Route: 065
  3. RISPERDAL [Suspect]
     Indication: BIPOLAR DISORDER
     Route: 065
  4. SEROQUEL [Suspect]
     Indication: PANIC ATTACK
     Route: 065
  5. SEROQUEL [Suspect]
     Indication: ANXIETY
     Route: 065
  6. SEROQUEL [Suspect]
     Indication: BIPOLAR DISORDER
     Route: 065
  7. ZYPREXA [Suspect]
     Indication: DRUG USE FOR UNKNOWN INDICATION
     Route: 065

REACTIONS (3)
  - TONGUE SPASM [None]
  - TYPE 2 DIABETES MELLITUS [None]
  - WEIGHT INCREASED [None]
